FAERS Safety Report 5026535-9 (Version None)
Quarter: 2006Q2

REPORT INFORMATION
  Report Type: 
  Country: None (occurrence: None)
  Receive Date: 20060615
  Receipt Date: 20060118
  Transmission Date: 20061013
  Serious: Yes (Hospitalization)
  Sender: FDA-Public Use
  Company Number: US-NOVOPROD-250130

PATIENT
  Age: 44 Year
  Sex: Female

DRUGS (18)
  1. SPIRIVA [Concomitant]
     Indication: ASTHMA
  2. NOVOLIN 70/30 [Suspect]
     Indication: DIABETES MELLITUS INSULIN-DEPENDENT
     Dosage: 70 IU QAM; 60 IU QPM
     Route: 058
     Dates: start: 20030101
  3. GLUCOTROL XL [Concomitant]
     Indication: DIABETES MELLITUS INSULIN-DEPENDENT
     Dosage: UNKNOWN
     Route: 048
  4. ULTRACET [Concomitant]
     Indication: PAIN
  5. FLONASE [Concomitant]
     Indication: SEASONAL ALLERGY
  6. PREVACID [Concomitant]
     Indication: GASTROOESOPHAGEAL REFLUX DISEASE
  7. AMITRIPTYLINE HCL [Concomitant]
     Indication: INSOMNIA
  8. POTASSIUM [Concomitant]
     Indication: BLOOD POTASSIUM
  9. FOSAMAX [Concomitant]
     Indication: BONE PAIN
  10. TOPROL-XL [Concomitant]
     Indication: CARDIAC DISORDER
  11. SKELAXIN [Concomitant]
     Indication: MUSCLE RELAXANT THERAPY
  12. PREDNISONE [Concomitant]
     Indication: CHRONIC OBSTRUCTIVE PULMONARY DISEASE
  13. ALBUTEROL [Concomitant]
     Indication: CHRONIC OBSTRUCTIVE PULMONARY DISEASE
  14. ATROVENT [Concomitant]
     Indication: CHRONIC OBSTRUCTIVE PULMONARY DISEASE
  15. ADVAIR DISKUS 100/50 [Concomitant]
     Indication: CHRONIC OBSTRUCTIVE PULMONARY DISEASE
  16. LISINOPRIL [Concomitant]
     Indication: NEPHROLITHIASIS
  17. LOPID [Concomitant]
     Indication: BLOOD TRIGLYCERIDES ABNORMAL
  18. LIPITOR                                 /NET/ [Concomitant]
     Indication: BLOOD CHOLESTEROL INCREASED

REACTIONS (2)
  - BLOOD GLUCOSE INCREASED [None]
  - LOCALISED INFECTION [None]
